FAERS Safety Report 25360420 (Version 1)
Quarter: 2025Q2

REPORT INFORMATION
  Report Type: Spontaneous
  Country: UA (occurrence: UA)
  Receive Date: 20250527
  Receipt Date: 20250527
  Transmission Date: 20250717
  Serious: Yes (Death, Life-Threatening, Other)
  Sender: ALKEM
  Company Number: UA-ALKEM LABORATORIES LIMITED-UA-ALKEM-2025-05215

PATIENT
  Age: 4 Year
  Sex: Female
  Weight: 20 kg

DRUGS (2)
  1. LIDOCAINE [Suspect]
     Active Substance: LIDOCAINE
     Indication: Bacterial infection
     Route: 030
  2. CEFTRIAXONE [Suspect]
     Active Substance: CEFTRIAXONE
     Indication: Bacterial infection
     Route: 030

REACTIONS (1)
  - Kounis syndrome [Fatal]
